FAERS Safety Report 9796242 (Version 2)
Quarter: 2014Q1

REPORT INFORMATION
  Report Type: Report from Study
  Country: DE (occurrence: CL)
  Receive Date: 20140103
  Receipt Date: 20140103
  Transmission Date: 20141002
  Serious: Yes (Other)
  Sender: FDA-Public Use
  Company Number: DE-ACTELION-A-US2013-90889

PATIENT
  Age: 45 Year
  Sex: Female

DRUGS (6)
  1. VENTAVIS [Suspect]
     Indication: PULMONARY ARTERIAL HYPERTENSION
     Dosage: UNK
     Route: 055
     Dates: start: 201309
  2. SILDENAFIL [Concomitant]
     Dosage: 3 PILLS A DAY
  3. FUROSEMIDE [Concomitant]
  4. DILTIAZEM [Concomitant]
  5. NEBILET [Concomitant]
  6. NEO-SINTROM [Concomitant]

REACTIONS (4)
  - Angina pectoris [Unknown]
  - Chest pain [Unknown]
  - Presyncope [Unknown]
  - Headache [Unknown]
